FAERS Safety Report 8624069-3 (Version None)
Quarter: 2012Q3

REPORT INFORMATION
  Report Type: 
  Country: None (occurrence: None)
  Receive Date: 20120827
  Receipt Date: 20120822
  Transmission Date: 20120928
  Serious: No
  Sender: FDA-Public Use
  Company Number: US-PFIZER INC-2012206548

PATIENT
  Age: 46 Year
  Sex: Female

DRUGS (7)
  1. TOBRAMYCIN [Suspect]
     Dosage: UNK
  2. PRILOSEC [Suspect]
     Dosage: UNK
  3. CODEINE SULFATE [Suspect]
     Dosage: UNK
  4. PREVACID [Suspect]
     Dosage: UNK
  5. BENADRYL [Suspect]
     Dosage: UNK
  6. KEFLEX [Suspect]
     Dosage: UNK
  7. DEMEROL [Suspect]
     Dosage: UNK

REACTIONS (1)
  - DRUG HYPERSENSITIVITY [None]
